FAERS Safety Report 4910611-2 (Version None)
Quarter: 2006Q1

REPORT INFORMATION
  Report Type: 
  Country: None (occurrence: None)
  Receive Date: 20060210
  Receipt Date: 20060210
  Transmission Date: 20060701
  Serious: Yes (Disabling)
  Sender: FDA-Public Use
  Company Number: None

PATIENT
  Age: 57 Year
  Sex: Female
  Weight: 43.5453 kg

DRUGS (12)
  1. THALIDOMIDE [Suspect]
     Indication: MULTIPLE MYELOMA
     Dosage: 200 MG PO Q 24 HRS
     Route: 048
     Dates: start: 20050701, end: 20050815
  2. LABETOLOL [Concomitant]
  3. DEXAMETHASONE SODIUM PHOSPHATE [Concomitant]
  4. LOVENOX [Concomitant]
  5. PAXIL [Concomitant]
  6. CARDIZEM [Concomitant]
  7. DURAGESIC-100 [Concomitant]
  8. ARANESP [Concomitant]
  9. PROTONIX [Concomitant]
  10. MEGACE [Concomitant]
  11. CA [Concomitant]
  12. COMBIVENT [Concomitant]

REACTIONS (5)
  - ABDOMINAL DISTENSION [None]
  - APHASIA [None]
  - CEREBROVASCULAR ACCIDENT [None]
  - FAECALOMA [None]
  - SMALL INTESTINAL OBSTRUCTION [None]
